FAERS Safety Report 8963012 (Version 1)
Quarter: 2012Q4

REPORT INFORMATION
  Report Type: 
  Country: US (occurrence: US)
  Receive Date: 20121214
  Receipt Date: 20121214
  Transmission Date: 20130627
  Serious: Yes (Hospitalization, Other)
  Sender: FDA-Public Use
  Company Number: US-SHIRE-ALL1-2012-05996

PATIENT
  Age: 18 Year
  Sex: Female

DRUGS (1)
  1. ADDERALL XR [Suspect]
     Indication: ATTENTION DEFICIT/HYPERACTIVITY DISORDER
     Dosage: 5 mg, 1x/day:qd
     Route: 048
     Dates: start: 2012

REACTIONS (2)
  - Suicidal behaviour [Unknown]
  - Palpitations [Unknown]
